FAERS Safety Report 20034691 (Version 11)
Quarter: 2022Q3

REPORT INFORMATION
  Report Type: Spontaneous
  Country: FR (occurrence: FR)
  Receive Date: 20211104
  Receipt Date: 20220819
  Transmission Date: 20221026
  Serious: Yes (Hospitalization, Disabling, Other)
  Sender: FDA-Public Use
  Company Number: FR-THERAMEX-2021000843

PATIENT
  Age: 50 Year
  Sex: Female
  Weight: 61 kg

DRUGS (130)
  1. VENLAFAXINE [Suspect]
     Active Substance: VENLAFAXINE HYDROCHLORIDE
     Indication: Headache
     Dosage: UNK
     Route: 065
  2. VENLAFAXINE [Suspect]
     Active Substance: VENLAFAXINE HYDROCHLORIDE
  3. DIANE (CYPROTERONE ACETATE\ETHINYL ESTRADIOL) [Suspect]
     Active Substance: CYPROTERONE ACETATE\ETHINYL ESTRADIOL
     Indication: Haemorrhage
     Dosage: UNK
     Route: 065
     Dates: start: 1999, end: 2001
  4. DIANE (CYPROTERONE ACETATE\ETHINYL ESTRADIOL) [Suspect]
     Active Substance: CYPROTERONE ACETATE\ETHINYL ESTRADIOL
     Indication: Migraine
     Dosage: UNK (LAST PRESCRIPTION)
     Route: 065
     Dates: start: 20001128
  5. DIANE (CYPROTERONE ACETATE\ETHINYL ESTRADIOL) [Suspect]
     Active Substance: CYPROTERONE ACETATE\ETHINYL ESTRADIOL
     Indication: Intermenstrual bleeding
     Dosage: UNK
     Route: 065
     Dates: start: 20011105
  6. DIANE (CYPROTERONE ACETATE\ETHINYL ESTRADIOL) [Suspect]
     Active Substance: CYPROTERONE ACETATE\ETHINYL ESTRADIOL
     Dosage: 2 MILLIGRAM, QD (2MG DAILY, 21D/MONTH)
     Route: 065
     Dates: start: 199905, end: 200011
  7. DIANE (CYPROTERONE ACETATE\ETHINYL ESTRADIOL) [Suspect]
     Active Substance: CYPROTERONE ACETATE\ETHINYL ESTRADIOL
     Dosage: UNK (NOVEMBER 2001 TO NOVEMBER 2002: NEW PRESCRIPT)
     Route: 065
     Dates: start: 200111, end: 200111
  8. DIANE (CYPROTERONE ACETATE\ETHINYL ESTRADIOL) [Suspect]
     Active Substance: CYPROTERONE ACETATE\ETHINYL ESTRADIOL
     Dosage: UNK
     Route: 065
  9. CHLORMADINONE ACETATE [Suspect]
     Active Substance: CHLORMADINONE ACETATE
     Indication: Migraine
     Dosage: 1 DOSAGE FORM, QD (EVERY 1 DAY) 10MG DAILY, 21 DAYS/MONTH1 DOSAGE FORMS DAILY; 1 DOSAGE FORM EVERY 1
     Route: 048
     Dates: start: 20011105, end: 200211
  10. CHLORMADINONE ACETATE [Suspect]
     Active Substance: CHLORMADINONE ACETATE
     Indication: Ovarian cyst
     Dosage: UNK
     Route: 065
     Dates: start: 2017, end: 2019
  11. CHLORMADINONE ACETATE [Suspect]
     Active Substance: CHLORMADINONE ACETATE
     Dosage: UNK
     Route: 065
     Dates: start: 20160226, end: 2017
  12. CHLORMADINONE ACETATE [Suspect]
     Active Substance: CHLORMADINONE ACETATE
     Dosage: UNK
     Route: 065
     Dates: start: 20190226
  13. CHLORMADINONE ACETATE [Suspect]
     Active Substance: CHLORMADINONE ACETATE
     Dosage: UNK
     Route: 065
     Dates: start: 2019
  14. BROMAZEPAM [Suspect]
     Active Substance: BROMAZEPAM
     Indication: Product used for unknown indication
     Dosage: UNK
     Route: 065
  15. BROMAZEPAM [Suspect]
     Active Substance: BROMAZEPAM
     Dosage: UNK
     Route: 065
  16. BROMAZEPAM [Suspect]
     Active Substance: BROMAZEPAM
     Dosage: UNK
     Route: 065
  17. BROMAZEPAM [Suspect]
     Active Substance: BROMAZEPAM
     Dosage: UNK
     Route: 065
  18. NOMEGESTROL ACETATE [Suspect]
     Active Substance: NOMEGESTROL ACETATE
     Indication: Haemorrhage
     Dosage: 1 DF, QD
     Route: 048
     Dates: start: 200111, end: 200211
  19. NOMEGESTROL ACETATE [Suspect]
     Active Substance: NOMEGESTROL ACETATE
     Indication: Migraine
     Dosage: UNK
     Route: 065
     Dates: start: 2002, end: 2011
  20. NOMEGESTROL ACETATE [Suspect]
     Active Substance: NOMEGESTROL ACETATE
     Indication: Intermenstrual bleeding
     Dosage: UNK
     Route: 048
     Dates: start: 20021113, end: 2011
  21. NOMEGESTROL ACETATE [Suspect]
     Active Substance: NOMEGESTROL ACETATE
     Indication: Contraception
     Dosage: UNK
     Route: 065
     Dates: start: 20031112, end: 2011
  22. NOMEGESTROL ACETATE [Suspect]
     Active Substance: NOMEGESTROL ACETATE
     Indication: Ovarian cyst
     Dosage: UNK (LUTENYL CONTINUOUSLY)
     Dates: start: 20061027, end: 2011
  23. NOMEGESTROL ACETATE [Suspect]
     Active Substance: NOMEGESTROL ACETATE
     Indication: Oral contraception
     Dosage: UNK
     Route: 065
     Dates: start: 20110316
  24. NOMEGESTROL ACETATE [Suspect]
     Active Substance: NOMEGESTROL ACETATE
     Dosage: UNK
     Route: 065
     Dates: start: 201103
  25. NOMEGESTROL ACETATE [Suspect]
     Active Substance: NOMEGESTROL ACETATE
     Dosage: UNK
     Route: 065
     Dates: start: 20040330
  26. NOMEGESTROL ACETATE [Suspect]
     Active Substance: NOMEGESTROL ACETATE
     Dosage: UNK
     Route: 065
     Dates: start: 20030430
  27. NOMEGESTROL ACETATE [Suspect]
     Active Substance: NOMEGESTROL ACETATE
     Dosage: UNK (RENEWAL LUTENYL)
     Route: 065
     Dates: start: 20080429
  28. NOMEGESTROL ACETATE [Suspect]
     Active Substance: NOMEGESTROL ACETATE
     Dosage: UNK (RENEWAL LUTENYL, LUTENYL CONTINUOUSLY)
     Route: 065
     Dates: start: 20050420
  29. NOMEGESTROL ACETATE [Suspect]
     Active Substance: NOMEGESTROL ACETATE
     Dosage: UNK
     Route: 065
     Dates: start: 2002, end: 2011
  30. NOMEGESTROL ACETATE [Suspect]
     Active Substance: NOMEGESTROL ACETATE
     Dosage: LUTENYL CONTINUOUSLY
     Route: 065
     Dates: start: 20091116
  31. NOMEGESTROL ACETATE [Suspect]
     Active Substance: NOMEGESTROL ACETATE
     Dosage: LUTENYL CONTINUOUSLY
     Route: 065
     Dates: start: 20071010
  32. NOMEGESTROL ACETATE [Suspect]
     Active Substance: NOMEGESTROL ACETATE
     Dosage: LUTENYL CONTINUOUSLY
     Route: 065
     Dates: start: 20051025
  33. NOMEGESTROL ACETATE [Suspect]
     Active Substance: NOMEGESTROL ACETATE
     Dosage: LUTENYL CONTINUOUSLY
     Route: 065
     Dates: start: 20100206
  34. NOMEGESTROL ACETATE [Suspect]
     Active Substance: NOMEGESTROL ACETATE
     Dosage: LUTENYL CONTINUOUSLY
     Route: 065
     Dates: start: 20080408
  35. NOMEGESTROL ACETATE [Suspect]
     Active Substance: NOMEGESTROL ACETATE
     Dosage: LUTENYL CONTINUOUSLY
     Route: 065
     Dates: start: 20040923
  36. NOMEGESTROL ACETATE [Suspect]
     Active Substance: NOMEGESTROL ACETATE
     Dosage: LUTENYL CONTINUOUSLY
     Route: 065
     Dates: start: 20070503
  37. NOMEGESTROL ACETATE [Suspect]
     Active Substance: NOMEGESTROL ACETATE
     Dosage: 1 DOSAGE FORM, EVERY 1 DAY
     Route: 048
     Dates: start: 20021113, end: 201103
  38. NOMEGESTROL ACETATE [Suspect]
     Active Substance: NOMEGESTROL ACETATE
     Dosage: 10 MILLIGRAM
     Route: 065
     Dates: start: 20020404
  39. NOMEGESTROL ACETATE [Suspect]
     Active Substance: NOMEGESTROL ACETATE
     Dosage: UNK (SWITCHED TO LUTENYL 5 MG DUE TO PERSISTENT BLEEDING)
     Route: 065
     Dates: start: 200211, end: 200403
  40. NOMEGESTROL ACETATE [Suspect]
     Active Substance: NOMEGESTROL ACETATE
     Dosage: 10 MILLIGRAM
     Route: 065
     Dates: start: 20011105, end: 2002
  41. NOMEGESTROL ACETATE [Suspect]
     Active Substance: NOMEGESTROL ACETATE
     Dosage: 10 MILLIGRAM
     Route: 065
     Dates: start: 20190226
  42. ESCITALOPRAM OXALATE [Suspect]
     Active Substance: ESCITALOPRAM OXALATE
     Indication: Product used for unknown indication
     Dosage: 15 MILLIGRAM
     Route: 065
  43. ESCITALOPRAM OXALATE [Suspect]
     Active Substance: ESCITALOPRAM OXALATE
     Dosage: UNK
     Route: 065
  44. ESCITALOPRAM OXALATE [Suspect]
     Active Substance: ESCITALOPRAM OXALATE
     Dosage: 15 MG
     Route: 065
  45. ESCITALOPRAM OXALATE [Suspect]
     Active Substance: ESCITALOPRAM OXALATE
     Dosage: 15 MG
     Route: 065
  46. ESCITALOPRAM OXALATE [Suspect]
     Active Substance: ESCITALOPRAM OXALATE
     Dosage: UNK
     Route: 065
  47. ALMOTRIPTAN MALATE [Suspect]
     Active Substance: ALMOTRIPTAN MALATE
     Indication: Headache
     Dosage: UNK
     Route: 065
  48. ALMOTRIPTAN MALATE [Suspect]
     Active Substance: ALMOTRIPTAN MALATE
     Dosage: UNK
     Route: 065
  49. ALMOTRIPTAN MALATE [Suspect]
     Active Substance: ALMOTRIPTAN MALATE
     Dosage: UNK
     Route: 065
  50. ALMOTRIPTAN MALATE [Suspect]
     Active Substance: ALMOTRIPTAN MALATE
     Dosage: UNK
     Route: 065
  51. VENTOLIN [Suspect]
     Active Substance: ALBUTEROL SULFATE
     Indication: Product used for unknown indication
     Dosage: UNK
     Route: 065
  52. VENTOLIN [Suspect]
     Active Substance: ALBUTEROL SULFATE
     Dosage: UNK
     Route: 065
  53. KEPPRA [Suspect]
     Active Substance: LEVETIRACETAM
     Indication: Product used for unknown indication
     Dosage: UNK
     Route: 065
  54. MEDROL [Suspect]
     Active Substance: METHYLPREDNISOLONE
     Indication: Product used for unknown indication
     Dosage: UNK
     Route: 065
  55. MEDROL [Suspect]
     Active Substance: METHYLPREDNISOLONE
     Dosage: UNK
     Route: 065
  56. MEDROL [Suspect]
     Active Substance: METHYLPREDNISOLONE
     Dosage: 4 MILLIGRAM
     Route: 048
     Dates: start: 201602
  57. INDOMETHACIN [Suspect]
     Active Substance: INDOMETHACIN
     Indication: Headache
     Dosage: UNK
     Route: 065
  58. INDOMETHACIN [Suspect]
     Active Substance: INDOMETHACIN
     Dosage: UNK
     Route: 065
  59. INDOMETHACIN [Suspect]
     Active Substance: INDOMETHACIN
     Dosage: UNK
     Route: 065
  60. CYPROTERONE ACETATE [Suspect]
     Active Substance: CYPROTERONE ACETATE
     Indication: Hirsutism
     Dosage: UNK
     Route: 065
     Dates: start: 201105, end: 201506
  61. CYPROTERONE ACETATE [Suspect]
     Active Substance: CYPROTERONE ACETATE
     Indication: Oral contraception
     Dosage: 1 GRAM
     Route: 048
     Dates: start: 20110506, end: 201506
  62. CYPROTERONE ACETATE [Suspect]
     Active Substance: CYPROTERONE ACETATE
     Indication: Hirsutism
     Dosage: 500 MILLIGRAM
     Route: 065
     Dates: start: 201505
  63. CYPROTERONE ACETATE [Suspect]
     Active Substance: CYPROTERONE ACETATE
     Dosage: 1 GRAM
     Route: 065
     Dates: start: 20150617
  64. CYPROTERONE ACETATE [Suspect]
     Active Substance: CYPROTERONE ACETATE
     Dosage: 1 DOSAGE FORM, QD
     Route: 048
     Dates: start: 201105, end: 201504
  65. CYPROTERONE ACETATE [Suspect]
     Active Substance: CYPROTERONE ACETATE
     Dosage: 1 GRAM
     Route: 065
     Dates: start: 20110506, end: 201506
  66. CYPROTERONE ACETATE [Suspect]
     Active Substance: CYPROTERONE ACETATE
     Dosage: UNK
     Route: 065
     Dates: start: 20111107
  67. CYPROTERONE ACETATE [Suspect]
     Active Substance: CYPROTERONE ACETATE
     Dosage: 50 MILLIGRAM, QD EVERY 1 DAY
     Route: 048
     Dates: start: 201105, end: 201506
  68. CYPROTERONE ACETATE [Suspect]
     Active Substance: CYPROTERONE ACETATE
     Dosage: UNK
     Route: 065
     Dates: start: 20150617
  69. CYPROTERONE ACETATE [Suspect]
     Active Substance: CYPROTERONE ACETATE
     Dosage: UNK
     Route: 065
     Dates: start: 20120406
  70. CYPROTERONE ACETATE [Suspect]
     Active Substance: CYPROTERONE ACETATE
     Dosage: UNK
     Route: 065
     Dates: start: 20121113
  71. CYPROTERONE ACETATE [Suspect]
     Active Substance: CYPROTERONE ACETATE
     Dosage: UNK
     Route: 065
     Dates: start: 20130514
  72. CYPROTERONE ACETATE [Suspect]
     Active Substance: CYPROTERONE ACETATE
     Dosage: 1 GRAM
     Route: 065
     Dates: start: 20150617
  73. CYPROTERONE ACETATE [Suspect]
     Active Substance: CYPROTERONE ACETATE
     Dosage: UNK
     Route: 065
     Dates: start: 20131127
  74. CYPROTERONE ACETATE [Suspect]
     Active Substance: CYPROTERONE ACETATE
     Dosage: UNK
     Route: 065
     Dates: start: 20170323
  75. CYPROTERONE ACETATE [Suspect]
     Active Substance: CYPROTERONE ACETATE
     Dosage: UNK
     Route: 065
     Dates: start: 20150115
  76. CYPROTERONE ACETATE [Suspect]
     Active Substance: CYPROTERONE ACETATE
     Dosage: UNK (DR. SAW THE PATIENT ON JULY 17, 2015,)
     Route: 065
     Dates: start: 20170717
  77. CYPROTERONE ACETATE [Suspect]
     Active Substance: CYPROTERONE ACETATE
     Dosage: 50 MILLIGRAM (50 MG CONTINUOUS)
     Route: 048
     Dates: start: 201111, end: 201507
  78. AMITRIPTYLINE HYDROCHLORIDE [Suspect]
     Active Substance: AMITRIPTYLINE HYDROCHLORIDE
     Indication: Headache
     Dosage: UNK
     Route: 065
  79. AMITRIPTYLINE HYDROCHLORIDE [Suspect]
     Active Substance: AMITRIPTYLINE HYDROCHLORIDE
     Dosage: UNK
     Route: 065
  80. AMITRIPTYLINE HYDROCHLORIDE [Suspect]
     Active Substance: AMITRIPTYLINE HYDROCHLORIDE
     Dosage: UNK
     Route: 065
  81. AMITRIPTYLINE HYDROCHLORIDE [Suspect]
     Active Substance: AMITRIPTYLINE HYDROCHLORIDE
     Dosage: UNK
     Route: 065
  82. OXETORONE [Suspect]
     Active Substance: OXETORONE
     Indication: Headache
     Dosage: UNK
     Route: 065
  83. OXETORONE [Suspect]
     Active Substance: OXETORONE
     Dosage: UNK
     Route: 065
  84. OXETORONE [Suspect]
     Active Substance: OXETORONE
     Dosage: UNK
     Route: 065
  85. OXETORONE [Suspect]
     Active Substance: OXETORONE
     Dosage: UNK
     Route: 065
  86. OXETORONE [Suspect]
     Active Substance: OXETORONE
     Dosage: UNK
     Route: 065
  87. OXETORONE [Suspect]
     Active Substance: OXETORONE
     Dosage: UNK
     Route: 065
  88. BROMAZEPAM [Suspect]
     Active Substance: BROMAZEPAM
     Indication: Product used for unknown indication
     Dosage: UNK
     Route: 065
  89. PROPRANOLOL HYDROCHLORIDE [Suspect]
     Active Substance: PROPRANOLOL HYDROCHLORIDE
     Indication: Headache
     Dosage: UNK
     Route: 065
     Dates: start: 199703
  90. PROPRANOLOL HYDROCHLORIDE [Suspect]
     Active Substance: PROPRANOLOL HYDROCHLORIDE
     Dosage: 1.5 DOSAGE FORM
     Route: 065
     Dates: start: 20001128
  91. ASPIRIN LYSINE\METOCLOPRAMIDE HYDROCHLORIDE [Suspect]
     Active Substance: ASPIRIN LYSINE\METOCLOPRAMIDE HYDROCHLORIDE
     Indication: Headache
     Dosage: UNK
     Route: 065
  92. ASPIRIN LYSINE\METOCLOPRAMIDE HYDROCHLORIDE [Suspect]
     Active Substance: ASPIRIN LYSINE\METOCLOPRAMIDE HYDROCHLORIDE
     Dosage: UNK
     Route: 065
  93. SINGULAIR [Suspect]
     Active Substance: MONTELUKAST SODIUM
     Indication: Product used for unknown indication
     Dosage: UNK
     Route: 065
  94. ALBUTEROL [Suspect]
     Active Substance: ALBUTEROL
     Indication: Asthma
     Dosage: UNK
     Route: 065
  95. NOMEGESTROL [Suspect]
     Active Substance: NOMEGESTROL
     Indication: Product used for unknown indication
     Dosage: UNK
  96. CYPROTERONE [Suspect]
     Active Substance: CYPROTERONE
     Indication: Product used for unknown indication
     Dosage: UNK
     Route: 065
  97. CHLORMADINONE [Suspect]
     Active Substance: CHLORMADINONE
     Indication: Product used for unknown indication
     Dosage: UNK
     Route: 065
  98. ESTRADIOL [Concomitant]
     Active Substance: ESTRADIOL
     Indication: Dysmenorrhoea
     Dosage: UNK
     Route: 065
  99. ESTRADIOL [Concomitant]
     Active Substance: ESTRADIOL
     Indication: Hair disorder
     Dosage: UNK
     Route: 065
  100. ESTRADIOL [Concomitant]
     Active Substance: ESTRADIOL
     Indication: Hair growth abnormal
     Dosage: UNK
     Route: 065
  101. ESTRADIOL [Concomitant]
     Active Substance: ESTRADIOL
     Indication: Dysmenorrhoea
     Dosage: 2 DOSAGE FORM (GEL 2 P)
     Route: 065
     Dates: start: 20150617
  102. ESTRADIOL [Concomitant]
     Active Substance: ESTRADIOL
     Dosage: 1 GEL PRESSURE
     Route: 065
     Dates: start: 20130514
  103. ESTRADIOL [Concomitant]
     Active Substance: ESTRADIOL
     Dosage: 1 DOSAGE FORM, 1 GEL PRESSURE
     Route: 065
     Dates: start: 20131127
  104. DIANE (CYPROTERONE ACETATE\ETHINYL ESTRADIOL) [Concomitant]
     Active Substance: CYPROTERONE ACETATE\ETHINYL ESTRADIOL
     Indication: Migraine
     Dosage: UNK
     Route: 065
     Dates: start: 1999, end: 2001
  105. DIANE (CYPROTERONE ACETATE\ETHINYL ESTRADIOL) [Concomitant]
     Active Substance: CYPROTERONE ACETATE\ETHINYL ESTRADIOL
     Indication: Haemorrhage
     Dosage: UNK
     Dates: start: 200006
  106. DIANE (CYPROTERONE ACETATE\ETHINYL ESTRADIOL) [Concomitant]
     Active Substance: CYPROTERONE ACETATE\ETHINYL ESTRADIOL
     Dosage: UNK
     Route: 065
     Dates: start: 199905, end: 200011
  107. Sibelium [Concomitant]
     Indication: Product used for unknown indication
     Dosage: UNK
     Route: 065
  108. SINGULAIR [Concomitant]
     Active Substance: MONTELUKAST SODIUM
     Indication: Product used for unknown indication
     Dosage: UNK
     Route: 065
     Dates: start: 20110516
  109. PAROXETINE HYDROCHLORIDE [Concomitant]
     Active Substance: PAROXETINE HYDROCHLORIDE
     Indication: Product used for unknown indication
     Dosage: UNK
     Route: 065
     Dates: start: 20051025
  110. OXETORONE [Concomitant]
     Active Substance: OXETORONE
     Indication: Headache
     Dosage: UNK
  111. TOPIRAMATE [Concomitant]
     Active Substance: TOPIRAMATE
     Indication: Headache
     Dosage: UNK
     Route: 065
     Dates: start: 20100608
  112. TOPIRAMATE [Concomitant]
     Active Substance: TOPIRAMATE
     Dosage: UNK
     Route: 065
     Dates: start: 20110516
  113. PROMESTRIENE [Concomitant]
     Active Substance: PROMESTRIENE
     Indication: Product used for unknown indication
     Dosage: UNK
     Route: 067
     Dates: start: 20090429
  114. PROMESTRIENE [Concomitant]
     Active Substance: PROMESTRIENE
     Dosage: UNK
     Route: 067
     Dates: start: 20091116
  115. PROMESTRIENE [Concomitant]
     Active Substance: PROMESTRIENE
     Dosage: UNK
     Route: 067
     Dates: start: 20090429
  116. PROMESTRIENE [Concomitant]
     Active Substance: PROMESTRIENE
     Dosage: UNK
     Route: 067
     Dates: start: 20091116
  117. PROMESTRIENE [Concomitant]
     Active Substance: PROMESTRIENE
     Dosage: 1 DOSAGE FORM
     Route: 067
     Dates: start: 20091116
  118. PROMESTRIENE [Concomitant]
     Active Substance: PROMESTRIENE
     Dosage: 1 DOSAGE FORM
     Route: 067
     Dates: start: 20090429
  119. DIHYDROERGOTAMINE MESYLATE [Concomitant]
     Active Substance: DIHYDROERGOTAMINE MESYLATE
     Dosage: COMMENT WHEN LUTENYL WAS RENEWED
     Route: 065
     Dates: start: 20050420
  120. PRAZEPAM [Concomitant]
     Active Substance: PRAZEPAM
     Dosage: 1.5 DOSAGE FORM, QD (1/2 TABLET X 3 ) TREATMENT WITH DEROXAT AND LYSANXIA. LUTENYL CONTINUOUSLY. NO
     Route: 065
     Dates: start: 20090429
  121. PRAZEPAM [Concomitant]
     Active Substance: PRAZEPAM
     Dosage: TREATMENT WITH DEROXAT AND LYSANXIA. LUTENYL CONTINUOUSLY. NO PERIOD; FOR LYSANXIA
     Route: 065
     Dates: start: 20051025
  122. PRAZEPAM [Concomitant]
     Active Substance: PRAZEPAM
     Dosage: 0.5 DOSAGE FORM (1/2 TABLET)
     Dates: start: 20060502
  123. PRAZEPAM [Concomitant]
     Active Substance: PRAZEPAM
     Dosage: TREATMENT WITH DEROXAT AND LYSANXIA. LUTENYL CONTINUOUSLY. NO PERIOD; FOR LYSANXIA
     Route: 065
     Dates: start: 20060502
  124. PULMICORT TURBUHALER [Concomitant]
     Active Substance: BUDESONIDE
     Indication: Product used for unknown indication
     Dosage: UNK
     Route: 065
     Dates: start: 20110516
  125. KETOPROFEN [Concomitant]
     Active Substance: KETOPROFEN
     Dosage: 2 DOSAGE FORM, QD (2 CAPSULES PER DAY)
     Route: 065
     Dates: start: 20050420
  126. TIANEPTINE [Concomitant]
     Active Substance: TIANEPTINE
     Indication: Headache
     Dosage: 2 DOSAGE FORM
     Route: 048
     Dates: start: 20100608
  127. TIANEPTINE [Concomitant]
     Active Substance: TIANEPTINE
     Dosage: 1 DOSAGE FORM, QD (1 TABLET PER DAY)
     Route: 048
     Dates: start: 20061027
  128. DOLIPRANE [Concomitant]
     Active Substance: ACETAMINOPHEN
     Indication: Product used for unknown indication
     Dosage: UNK
     Route: 065
  129. MEDROL [Concomitant]
     Active Substance: METHYLPREDNISOLONE
     Indication: Product used for unknown indication
     Dosage: 4 MILLIGRAM
     Route: 048
     Dates: start: 201602
  130. VENTOLIN [Concomitant]
     Active Substance: ALBUTEROL SULFATE
     Indication: Product used for unknown indication
     Dosage: UNK
     Route: 065

REACTIONS (86)
  - Meningioma [Not Recovered/Not Resolved]
  - Hypoaesthesia eye [Not Recovered/Not Resolved]
  - Heterophoria [Not Recovered/Not Resolved]
  - Eyelid ptosis [Not Recovered/Not Resolved]
  - Exophthalmos [Recovered/Resolved]
  - Photophobia [Recovered/Resolved]
  - Condition aggravated [Recovered/Resolved]
  - Anisocoria [Not Recovered/Not Resolved]
  - Ligament sprain [Unknown]
  - Impaired quality of life [Not Recovered/Not Resolved]
  - Coordination abnormal [Not Recovered/Not Resolved]
  - Headache [Unknown]
  - Eye pain [Not Recovered/Not Resolved]
  - Paraesthesia [Not Recovered/Not Resolved]
  - Amnesia [Not Recovered/Not Resolved]
  - Asthenia [Not Recovered/Not Resolved]
  - Mydriasis [Not Recovered/Not Resolved]
  - Gait disturbance [Not Recovered/Not Resolved]
  - Dizziness [Not Recovered/Not Resolved]
  - Nausea [Not Recovered/Not Resolved]
  - Somnolence [Not Recovered/Not Resolved]
  - Visual impairment [Unknown]
  - Pain [Unknown]
  - Diplopia [Not Recovered/Not Resolved]
  - Migraine with aura [Not Recovered/Not Resolved]
  - Neck pain [Not Recovered/Not Resolved]
  - Asthenopia [Not Recovered/Not Resolved]
  - Hot flush [Not Recovered/Not Resolved]
  - Malaise [Not Recovered/Not Resolved]
  - Occipital neuralgia [Not Recovered/Not Resolved]
  - Clumsiness [Not Recovered/Not Resolved]
  - Discomfort [Not Recovered/Not Resolved]
  - Epilepsy [Not Recovered/Not Resolved]
  - Fatigue [Not Recovered/Not Resolved]
  - Intermenstrual bleeding [Recovered/Resolved]
  - Fall [Unknown]
  - General physical health deterioration [Unknown]
  - Sleep disorder [Not Recovered/Not Resolved]
  - Tenderness [Not Recovered/Not Resolved]
  - Phonophobia [Not Recovered/Not Resolved]
  - Vertigo [Not Recovered/Not Resolved]
  - Hypoaesthesia [Not Recovered/Not Resolved]
  - Hypocalcaemia [Not Recovered/Not Resolved]
  - Visual field defect [Not Recovered/Not Resolved]
  - Impaired work ability [Recovered/Resolved]
  - Communication disorder [Not Recovered/Not Resolved]
  - Cognitive disorder [Not Recovered/Not Resolved]
  - Back pain [Not Recovered/Not Resolved]
  - Depression [Not Recovered/Not Resolved]
  - Migraine without aura [Not Recovered/Not Resolved]
  - Apathy [Not Recovered/Not Resolved]
  - Eye movement disorder [Unknown]
  - Nervous system disorder [Recovering/Resolving]
  - Blindness [Not Recovered/Not Resolved]
  - Eye injury [Not Recovered/Not Resolved]
  - Retrograde amnesia [Not Recovered/Not Resolved]
  - Balance disorder [Not Recovered/Not Resolved]
  - General physical condition abnormal [Not Recovered/Not Resolved]
  - Tremor [Not Recovered/Not Resolved]
  - Cluster headache [Not Recovered/Not Resolved]
  - Disability [Unknown]
  - Hypertrichosis [Unknown]
  - Limb discomfort [Unknown]
  - Upper limb fracture [Unknown]
  - Night sweats [Unknown]
  - Amenorrhoea [Unknown]
  - Hyperhidrosis [Unknown]
  - Overdose [Unknown]
  - Weight increased [Unknown]
  - Fibroadenoma of breast [Unknown]
  - Migraine [Unknown]
  - Vulvovaginal dryness [Unknown]
  - Menopausal symptoms [Unknown]
  - Withdrawal syndrome [Unknown]
  - Ill-defined disorder [Unknown]
  - Vision blurred [Unknown]
  - Muscle twitching [Unknown]
  - Movement disorder [Unknown]
  - Urinary incontinence [Unknown]
  - Crying [Unknown]
  - Menometrorrhagia [Unknown]
  - Heavy menstrual bleeding [Recovered/Resolved]
  - Tachycardia [Unknown]
  - Myopia [Unknown]
  - Ovarian cyst [Unknown]
  - Off label use [Unknown]

NARRATIVE: CASE EVENT DATE: 20001101
